FAERS Safety Report 24831270 (Version 1)
Quarter: 2025Q1

REPORT INFORMATION
  Report Type: Spontaneous
  Country: CA (occurrence: CA)
  Receive Date: 20250110
  Receipt Date: 20250110
  Transmission Date: 20250409
  Serious: Yes (Other)
  Sender: BAUSCH AND LOMB
  Company Number: CA-BAUSCH-BL-2025-000078

PATIENT
  Age: 39 Year
  Sex: Female

DRUGS (2)
  1. RETIN-A [Suspect]
     Active Substance: TRETINOIN
     Indication: Acne
     Route: 061
  2. ESCITALOPRAM [Concomitant]
     Active Substance: ESCITALOPRAM OXALATE
     Indication: Product used for unknown indication
     Route: 065

REACTIONS (4)
  - Application site discharge [Recovering/Resolving]
  - Application site dryness [Recovering/Resolving]
  - Application site irritation [Recovering/Resolving]
  - Application site swelling [Recovering/Resolving]
